FAERS Safety Report 10206083 (Version 2)
Quarter: 2014Q2

REPORT INFORMATION
  Report Type: Spontaneous
  Country: CA (occurrence: CA)
  Receive Date: 20140530
  Receipt Date: 20140613
  Transmission Date: 20141212
  Serious: Yes (Other)
  Sender: FDA-Public Use
  Company Number: CA-AMGEN-CANSP2014038941

PATIENT
  Age: 63 Year
  Sex: Female

DRUGS (3)
  1. PROLIA [Suspect]
     Indication: OSTEOPOROSIS POSTMENOPAUSAL
     Dosage: 60 MG, Q6MO
     Route: 058
     Dates: start: 20130627
  2. TOBRAMAX [Concomitant]
     Dosage: UNK
  3. LYRICA [Concomitant]
     Dosage: UNK

REACTIONS (5)
  - Renal cyst [Unknown]
  - Eye operation [Unknown]
  - Groin pain [Not Recovered/Not Resolved]
  - Urinary tract infection [Recovered/Resolved]
  - Facial neuralgia [Unknown]
